FAERS Safety Report 21853325 (Version 2)
Quarter: 2023Q1

REPORT INFORMATION
  Report Type: Spontaneous
  Country: US (occurrence: US)
  Receive Date: 20230112
  Receipt Date: 20230117
  Transmission Date: 20230418
  Serious: Yes (Other)
  Sender: FDA-Public Use
  Company Number: US-BRISTOL-MYERS SQUIBB COMPANY-2023-004947

PATIENT
  Age: 67 Year
  Sex: Male
  Weight: 87.54 kg

DRUGS (1)
  1. REVLIMID [Suspect]
     Active Substance: LENALIDOMIDE
     Indication: Plasma cell myeloma
     Dosage: FREQUENCY- 3W, 1W OFF
     Route: 048
     Dates: start: 20220801

REACTIONS (2)
  - Drug intolerance [Not Recovered/Not Resolved]
  - Plasma cell myeloma [Not Recovered/Not Resolved]
